FAERS Safety Report 12963273 (Version 1)
Quarter: 2016Q4

REPORT INFORMATION
  Report Type: Spontaneous
  Country: US (occurrence: US)
  Receive Date: 20161122
  Receipt Date: 20161122
  Transmission Date: 20170207
  Serious: Yes (Other)
  Sender: FDA-Public Use
  Company Number: US-BAUSCH-BL-2016-025320

PATIENT
  Age: 61 Year
  Sex: Female

DRUGS (2)
  1. UCERIS [Suspect]
     Active Substance: BUDESONIDE
     Indication: GASTROINTESTINAL INFLAMMATION
     Route: 065
     Dates: start: 20151228
  2. UCERIS [Suspect]
     Active Substance: BUDESONIDE
     Indication: COLITIS

REACTIONS (3)
  - Drug ineffective [Unknown]
  - Infection [Not Recovered/Not Resolved]
  - Cerebral disorder [Unknown]

NARRATIVE: CASE EVENT DATE: 201512
